FAERS Safety Report 9503791 (Version 2)
Quarter: 2013Q3

REPORT INFORMATION
  Report Type: Spontaneous
  Country: FR (occurrence: FR)
  Receive Date: 20130906
  Receipt Date: 20130926
  Transmission Date: 20140515
  Serious: Yes (Hospitalization, Other)
  Sender: FDA-Public Use
  Company Number: FR-JNJFOC-20130817038

PATIENT
  Age: 66 Year
  Sex: Male
  Weight: 90 kg

DRUGS (9)
  1. PREZISTA [Suspect]
     Indication: HIV INFECTION
     Route: 048
     Dates: start: 2008
  2. PREZISTA [Suspect]
     Indication: HIV INFECTION
     Route: 048
  3. PREZISTA [Suspect]
     Indication: HIV INFECTION
     Route: 048
  4. CELSENTRI [Suspect]
     Indication: HIV INFECTION
     Route: 048
  5. CELSENTRI [Suspect]
     Indication: HIV INFECTION
     Route: 048
     Dates: start: 2010
  6. ISENTRESS [Suspect]
     Indication: HIV INFECTION
     Route: 048
     Dates: start: 2008, end: 201211
  7. TRUVADA [Suspect]
     Indication: HIV INFECTION
     Route: 048
     Dates: start: 2008, end: 201304
  8. INTELENCE [Suspect]
     Indication: HIV INFECTION
     Route: 065
  9. NORVIR [Concomitant]
     Indication: HIV INFECTION
     Route: 048
     Dates: start: 2008

REACTIONS (4)
  - Rhabdomyolysis [Recovering/Resolving]
  - Myalgia [Not Recovered/Not Resolved]
  - Mitochondrial cytopathy [Unknown]
  - Prescribed overdose [Unknown]
